FAERS Safety Report 6140745-9 (Version None)
Quarter: 2009Q2

REPORT INFORMATION
  Report Type: 
  Country: None (occurrence: None)
  Receive Date: 20090402
  Receipt Date: 20090325
  Transmission Date: 20091009
  Serious: Yes (Other)
  Sender: FDA-Public Use
  Company Number: PHHY2009AU11488

PATIENT
  Sex: Female

DRUGS (1)
  1. TEGRETOL [Suspect]
     Indication: CONVULSION
     Dosage: UNK

REACTIONS (4)
  - BONE OPERATION [None]
  - CLAVICLE FRACTURE [None]
  - FALL [None]
  - OSTEOPOROSIS [None]
